FAERS Safety Report 15707180 (Version 2)
Quarter: 2019Q1

REPORT INFORMATION
  Report Type: Spontaneous
  Country: US (occurrence: US)
  Receive Date: 20181210
  Receipt Date: 20190309
  Transmission Date: 20190417
  Serious: Yes (Other)
  Sender: FDA-Public Use
  Company Number: PHEH2018US051798

PATIENT
  Age: 51 Year
  Sex: Female

DRUGS (1)
  1. TASIGNA [Suspect]
     Active Substance: NILOTINIB
     Indication: CHRONIC MYELOID LEUKAEMIA
     Dosage: 150 MG, BID
     Route: 048
     Dates: start: 201305, end: 201802

REACTIONS (28)
  - Thrombosis [Unknown]
  - Cerebrovascular accident [Unknown]
  - Myocardial infarction [Unknown]
  - Mitral valve incompetence [Unknown]
  - Tricuspid valve incompetence [Unknown]
  - Weight decreased [Unknown]
  - Melaena [Unknown]
  - Constipation [Unknown]
  - Cardiomyopathy [Unknown]
  - Angina pectoris [Unknown]
  - Somatic symptom disorder [Unknown]
  - Depression [Unknown]
  - Tinea pedis [Unknown]
  - Dyspnoea [Unknown]
  - Contusion [Unknown]
  - Thrombocytopenia [Unknown]
  - Chest pain [Unknown]
  - Anaemia [Unknown]
  - Arteriosclerosis [Unknown]
  - Hallucination, auditory [Unknown]
  - Dysarthria [Unknown]
  - Fall [Unknown]
  - Gingival discomfort [Unknown]
  - Hypercholesterolaemia [Unknown]
  - Seizure [Unknown]
  - Hypokalaemia [Unknown]
  - Hot flush [Unknown]
  - Arthritis [Unknown]

NARRATIVE: CASE EVENT DATE: 2013
